FAERS Safety Report 8317139-0 (Version None)
Quarter: 2012Q2

REPORT INFORMATION
  Report Type: 
  Country: None (occurrence: None)
  Receive Date: 20120427
  Receipt Date: 20120423
  Transmission Date: 20120825
  Serious: Yes (Death)
  Sender: FDA-Public Use
  Company Number: PHHY2012US035288

PATIENT
  Age: 22 Year
  Sex: Male

DRUGS (2)
  1. METHAMPHETAMINE HYDROCHLORIDE [Suspect]
  2. METOPROLOL TARTRATE [Suspect]
     Route: 048

REACTIONS (1)
  - DRUG ABUSE [None]
